FAERS Safety Report 10063059 (Version 2)
Quarter: 2014Q3

REPORT INFORMATION
  Report Type: Spontaneous
  Country: US (occurrence: US)
  Receive Date: 20140407
  Receipt Date: 20140714
  Transmission Date: 20150326
  Serious: Yes (Hospitalization)
  Sender: FDA-Public Use
  Company Number: US-INCYTE CORPORATION-2014IN000888

PATIENT
  Sex: Female

DRUGS (14)
  1. ZYLOPRIM [Concomitant]
     Active Substance: ALLOPURINOL
     Dosage: 300 MG, 1 TABLET  BID, AFTER MEALS
     Route: 048
  2. PEPCID [Concomitant]
     Active Substance: FAMOTIDINE
     Dosage: 20 MG, QD EVERY MORNING
     Route: 048
  3. DILAUDID [Concomitant]
     Active Substance: HYDROMORPHONE HYDROCHLORIDE
     Dosage: 1-2 TABLETS BY MOUTH EVERY 4 HOURS IF NEEDED.
  4. SENOKOT [Concomitant]
     Active Substance: SENNOSIDES
     Dosage: 8.6 MG. 2  TABLETS EVERY DAY AT BEDTIME
     Route: 048
  5. ADVAIR HFA [Concomitant]
     Active Substance: FLUTICASONE PROPIONATE\SALMETEROL XINAFOATE
     Dosage: 100-50 MCG/DOSE DISK WITH DEVICE INHALER. TAKE 1 PUFF BY INHALATION 2 TIMES A DAY
  6. PROTONIX [Concomitant]
     Active Substance: PANTOPRAZOLE SODIUM
  7. BENADRYL ITCH RELIEF [Concomitant]
     Dosage: APPLY TO THE AFFECTED AREA 4 TIMES A DAY
     Route: 061
  8. COLACE [Concomitant]
     Active Substance: DOCUSATE SODIUM
     Dosage: 100 MG, BID
     Route: 048
  9. DESYREL [Concomitant]
     Active Substance: TRAZODONE HYDROCHLORIDE
     Indication: INSOMNIA
     Dosage: 50 MG. 1 TABLET EVERY DAY AT BEDTIME IF NEEDED
     Route: 048
  10. ATIVAN [Concomitant]
     Active Substance: LORAZEPAM
     Indication: ANXIETY
     Dosage: 0.5 MG EVERY 8 HOURS IF NEEDED
     Route: 048
  11. OXYCONTIN [Concomitant]
     Active Substance: OXYCODONE HYDROCHLORIDE
     Dosage: 10 MG SR TABLET. 2 TABLETS 2 TIMES A DAY
     Route: 048
  12. JAKAFI [Suspect]
     Active Substance: RUXOLITINIB
     Indication: MYELOFIBROSIS
     Dosage: 10 MG, BID
     Route: 048
     Dates: start: 20140213
  13. NEURONTIN [Concomitant]
     Active Substance: GABAPENTIN
     Dosage: 300 MG, TID
     Route: 048
  14. BENADRYL [Concomitant]
     Active Substance: DIPHENHYDRAMINE HYDROCHLORIDE
     Dosage: 25 MG CAPSULE. TAKE 1 CAPSULE EVERY 6 HOURS IF NEEDED
     Route: 048

REACTIONS (2)
  - Acute myeloid leukaemia [Unknown]
  - Tumour lysis syndrome [Recovering/Resolving]
